FAERS Safety Report 13385795 (Version 1)
Quarter: 2017Q1

REPORT INFORMATION
  Report Type: Spontaneous
  Country: US (occurrence: US)
  Receive Date: 20170330
  Receipt Date: 20170330
  Transmission Date: 20170429
  Serious: Yes (Hospitalization, Other)
  Sender: FDA-Public Use
  Company Number: US-PFIZER INC-2017135007

PATIENT
  Age: 15 Year
  Sex: Male

DRUGS (5)
  1. GENOTROPIN [Suspect]
     Active Substance: SOMATROPIN
     Dosage: 2 (UNIT NOT PROVIDED), 1X/DAY
     Dates: start: 2016
  2. DDAVP [Concomitant]
     Active Substance: DESMOPRESSIN ACETATE
     Indication: DIABETES INSIPIDUS
     Dosage: 0.25 DF, 2X/DAY, AS NEEDED
  3. ZYRTEC [Concomitant]
     Active Substance: CETIRIZINE HYDROCHLORIDE
     Indication: HYPERSENSITIVITY
     Dosage: UNK UNK, 1X/DAY
  4. PROGRAF [Concomitant]
     Active Substance: TACROLIMUS\TACROLIMUS ANHYDROUS
     Indication: LIVER TRANSPLANT REJECTION
     Dosage: 2.5 (UNIT NOT PROVIDED), 2X/DAY
     Dates: start: 2005
  5. GENOTROPIN [Suspect]
     Active Substance: SOMATROPIN
     Dosage: 2 (UNIT NOT PROVIDED), 1X/DAY

REACTIONS (9)
  - Asthenia [Recovering/Resolving]
  - Product quality issue [Unknown]
  - Fatigue [Recovering/Resolving]
  - Red blood cell count decreased [Unknown]
  - Drug dose omission [Unknown]
  - Jaundice [Recovering/Resolving]
  - Blood bilirubin increased [Unknown]
  - Viral infection [Unknown]
  - Malaise [Unknown]

NARRATIVE: CASE EVENT DATE: 201703
